FAERS Safety Report 12961105 (Version 2)
Quarter: 2016Q4

REPORT INFORMATION
  Report Type: Spontaneous
  Country: US (occurrence: US)
  Receive Date: 20161121
  Receipt Date: 20161121
  Transmission Date: 20170207
  Serious: No
  Sender: FDA-Public Use
  Company Number: US-PFIZER INC-2016538858

PATIENT
  Age: 70 Year
  Sex: Male
  Weight: 127.1 kg

DRUGS (11)
  1. DUTASTERIDE. [Interacting]
     Active Substance: DUTASTERIDE
     Dosage: UNK
  2. VIAGRA [Interacting]
     Active Substance: SILDENAFIL CITRATE
     Dosage: 100 MG, AS NEEDED
  3. METOPROLOL TARTRATE. [Interacting]
     Active Substance: METOPROLOL TARTRATE
     Dosage: UNK
  4. VIAGRA [Suspect]
     Active Substance: SILDENAFIL CITRATE
     Indication: ERECTILE DYSFUNCTION
     Dosage: 50 MG, AS NEEDED
     Dates: start: 2016
  5. HUMALOG [Interacting]
     Active Substance: INSULIN LISPRO
     Dosage: UNK
  6. METFORMIN [Interacting]
     Active Substance: METFORMIN HYDROCHLORIDE
     Dosage: UNK
  7. LEVEMIR [Interacting]
     Active Substance: INSULIN DETEMIR
     Dosage: UNK
  8. ATORVASTATIN CALCIUM. [Interacting]
     Active Substance: ATORVASTATIN CALCIUM
     Dosage: UNK
  9. LORAZEPAM. [Interacting]
     Active Substance: LORAZEPAM
     Dosage: UNK
  10. GABAPENTIN. [Interacting]
     Active Substance: GABAPENTIN
     Indication: DIABETIC NEUROPATHY
     Dosage: 100 MG, UNK
  11. OMEPRAZOLE. [Interacting]
     Active Substance: OMEPRAZOLE
     Dosage: UNK

REACTIONS (3)
  - Drug interaction [Unknown]
  - Intentional product misuse [Unknown]
  - Drug ineffective [Unknown]

NARRATIVE: CASE EVENT DATE: 2016
